FAERS Safety Report 9001790 (Version 1)
Quarter: 2013Q1

REPORT INFORMATION
  Report Type: Spontaneous
  Country: US (occurrence: US)
  Receive Date: 20130107
  Receipt Date: 20130107
  Transmission Date: 20140127
  Serious: No
  Sender: FDA-Public Use
  Company Number: US-ASTELLAS-2012US011858

PATIENT
  Age: 67 Year
  Sex: Male

DRUGS (3)
  1. MYRBETRIQ [Suspect]
     Indication: POLLAKIURIA
     Dosage: 25 MG, UNKNOWN/D
     Route: 048
     Dates: start: 20121113
  2. MYRBETRIQ [Suspect]
     Indication: MICTURITION URGENCY
  3. MYRBETRIQ [Suspect]
     Indication: INCONTINENCE

REACTIONS (1)
  - Drug ineffective [Unknown]
